FAERS Safety Report 4646200-7 (Version None)
Quarter: 2005Q2

REPORT INFORMATION
  Report Type: 
  Country: None (occurrence: None)
  Receive Date: 20050422
  Receipt Date: 20050413
  Transmission Date: 20051028
  Serious: Yes (Congenital Anomaly)
  Sender: FDA-Public Use
  Company Number: 05P-167-0297341-00

PATIENT
  Sex: Male

DRUGS (2)
  1. VALPROATE SODIUM [Suspect]
     Indication: MATERNAL DRUGS AFFECTING FOETUS
  2. CARBAMAZEPINE [Suspect]
     Indication: MATERNAL DRUGS AFFECTING FOETUS

REACTIONS (13)
  - ANXIETY [None]
  - AUTISM [None]
  - CLINODACTYLY [None]
  - CONGENITAL ANOMALY [None]
  - DRUG EXPOSURE DURING PREGNANCY [None]
  - FACIAL DYSMORPHISM [None]
  - FOETAL VALPROATE SYNDROME [None]
  - HYPERACUSIS [None]
  - NIPPLE DISORDER [None]
  - OBSESSIVE THOUGHTS [None]
  - PSYCHOMOTOR SKILLS IMPAIRED [None]
  - SOCIAL AVOIDANT BEHAVIOUR [None]
  - SPEECH DISORDER DEVELOPMENTAL [None]
